FAERS Safety Report 13328939 (Version 1)
Quarter: 2017Q1

REPORT INFORMATION
  Report Type: Spontaneous
  Country: US (occurrence: US)
  Receive Date: 20170310
  Receipt Date: 20170310
  Transmission Date: 20170428
  Serious: No
  Sender: FDA-Public Use
  Company Number: None

PATIENT
  Age: 84 Year
  Sex: Female

DRUGS (1)
  1. CAPECITABINE 500MG ACCORD HEALTHCARE, INC [Suspect]
     Active Substance: CAPECITABINE
     Indication: NEOPLASM MALIGNANT
     Dosage: CAPECITABINE 500MG TAKE 3 TABS EVERY MORNING AND 2 TABS EVERY EVENING ORALLY
     Route: 048
     Dates: start: 20170222

REACTIONS (1)
  - Rash [None]

NARRATIVE: CASE EVENT DATE: 20170309
